FAERS Safety Report 9301428 (Version 1)
Quarter: 2013Q2

REPORT INFORMATION
  Report Type: Spontaneous
  Country: US (occurrence: US)
  Receive Date: 20130521
  Receipt Date: 20130521
  Transmission Date: 20140414
  Serious: Yes (Hospitalization, Other)
  Sender: FDA-Public Use
  Company Number: US-BRISTOL-MYERS SQUIBB COMPANY-18884395

PATIENT
  Age: 77 Year
  Sex: Female
  Weight: 88.43 kg

DRUGS (1)
  1. ABATACEPT SUBQ INJECTION 125MG/ML [Suspect]
     Indication: RHEUMATOID ARTHRITIS
     Dosage: RECENT DOSE 03MAY13?6-8 MONTHS
     Route: 058

REACTIONS (4)
  - Pain [Unknown]
  - Hernia [Unknown]
  - Back disorder [Unknown]
  - Neck surgery [Unknown]
